FAERS Safety Report 25035421 (Version 1)
Quarter: 2025Q1

REPORT INFORMATION
  Report Type: Report from Study
  Country: CO (occurrence: CO)
  Receive Date: 20250304
  Receipt Date: 20250304
  Transmission Date: 20250408
  Serious: Yes (Death, Hospitalization, Other)
  Sender: UCB
  Company Number: CO-UCBSA-2025011811

PATIENT
  Age: 81 Year
  Sex: Female

DRUGS (3)
  1. CERTOLIZUMAB PEGOL [Suspect]
     Active Substance: CERTOLIZUMAB PEGOL
     Indication: Rheumatoid arthritis
     Dosage: 400 MILLIGRAM, EV 30 DAYS
     Route: 058
     Dates: start: 20231027, end: 20241007
  2. METHOTREXATE [Concomitant]
     Active Substance: METHOTREXATE
     Indication: Product used for unknown indication
  3. FOLIC ACID [Concomitant]
     Active Substance: FOLIC ACID
     Indication: Product used for unknown indication

REACTIONS (10)
  - Multiple organ dysfunction syndrome [Fatal]
  - Pulmonary oedema [Not Recovered/Not Resolved]
  - Bronchitis [Not Recovered/Not Resolved]
  - Anaemia [Not Recovered/Not Resolved]
  - Haemoglobin decreased [Not Recovered/Not Resolved]
  - Blood pressure increased [Not Recovered/Not Resolved]
  - Arthralgia [Not Recovered/Not Resolved]
  - Therapy interrupted [Unknown]
  - Insurance issue [Unknown]
  - Off label use [Unknown]

NARRATIVE: CASE EVENT DATE: 20231027
